FAERS Safety Report 7834739-2 (Version None)
Quarter: 2011Q4

REPORT INFORMATION
  Report Type: 
  Country: None (occurrence: None)
  Receive Date: 20111024
  Receipt Date: 20111014
  Transmission Date: 20120403
  Serious: Yes (Other)
  Sender: FDA-Public Use
  Company Number: US-AMGEN-USASP2011054050

PATIENT

DRUGS (2)
  1. EPOGEN [Suspect]
     Indication: MYELODYSPLASTIC SYNDROME
     Dosage: UNK
  2. NEUPOGEN [Suspect]
     Indication: MYELODYSPLASTIC SYNDROME

REACTIONS (1)
  - CUTANEOUS VASCULITIS [None]
